FAERS Safety Report 10873869 (Version 2)
Quarter: 2015Q2

REPORT INFORMATION
  Report Type: Spontaneous
  Country: IT (occurrence: None)
  Receive Date: 20150224
  Receipt Date: 20150616
  Transmission Date: 20150821
  Serious: Yes (Other)
  Sender: FDA-Public Use
  Company Number: IT-H14001-15-00251

PATIENT
  Age: 72 Year
  Sex: Male

DRUGS (5)
  1. AMIODARONE HIKMA [Suspect]
     Active Substance: AMIODARONE
     Indication: ATRIAL FIBRILLATION
     Route: 041
     Dates: start: 20150205, end: 20150205
  2. FOZNOL (LANTHANUM CARBONATE) [Concomitant]
  3. VASCOMAN (MANIDIPINE HYDROCHLORIDE) [Concomitant]
  4. PARIET (RABEPRAZOLE SODIUM) [Concomitant]
  5. ALLOPURINOL. [Concomitant]
     Active Substance: ALLOPURINOL

REACTIONS (2)
  - Infusion site necrosis [None]
  - Infusion site extravasation [None]

NARRATIVE: CASE EVENT DATE: 20150210
